FAERS Safety Report 4341582-8 (Version None)
Quarter: 2004Q2

REPORT INFORMATION
  Report Type: 
  Country: None (occurrence: None)
  Receive Date: 20040415
  Receipt Date: 20040330
  Transmission Date: 20050107
  Serious: Yes (Other)
  Sender: FDA-Public Use
  Company Number: USA040363630

PATIENT
  Age: 66 Year
  Sex: Female

DRUGS (2)
  1. FORTEO [Suspect]
     Dates: start: 20030804
  2. FOSMAX (ALENDORATE SODIUM) [Concomitant]

REACTIONS (2)
  - ARTHRALGIA [None]
  - ARTHROPATHY [None]
